FAERS Safety Report 7283531-9 (Version None)
Quarter: 2011Q1

REPORT INFORMATION
  Report Type: 
  Country: None (occurrence: None)
  Receive Date: 20110209
  Receipt Date: 20110203
  Transmission Date: 20110831
  Serious: Yes (Death, Life-Threatening)
  Sender: FDA-Public Use
  Company Number: NL-GENZYME-CLOF-1001334

PATIENT
  Sex: Male
  Weight: 74.5 kg

DRUGS (3)
  1. CYTARABINE [Suspect]
     Indication: ACUTE MYELOID LEUKAEMIA
     Dosage: 400 MG, QD
     Route: 042
     Dates: start: 20101110, end: 20101116
  2. EVOLTRA [Suspect]
     Indication: ACUTE MYELOID LEUKAEMIA
     Dosage: 30 MG, QDX5
     Route: 042
     Dates: start: 20101110, end: 20101114
  3. IDARUBICIN [Suspect]
     Indication: ACUTE MYELOID LEUKAEMIA
     Dosage: 24 MG, QDX3
     Route: 042
     Dates: start: 20101110, end: 20101112

REACTIONS (3)
  - RESPIRATORY FAILURE [None]
  - HYPOKALAEMIA [None]
  - MULTI-ORGAN FAILURE [None]
